FAERS Safety Report 7162749-X (Version None)
Quarter: 2010Q4

REPORT INFORMATION
  Report Type: 
  Country: None (occurrence: None)
  Receive Date: 20101215
  Receipt Date: 20091215
  Transmission Date: 20110411
  Serious: Yes (Hospitalization)
  Sender: FDA-Public Use
  Company Number: US-PFIZER INC-2009310869

PATIENT
  Sex: Female
  Weight: 72.6 kg

DRUGS (17)
  1. SILDENAFIL CITRATE [Suspect]
     Indication: PULMONARY HYPERTENSION
  2. DIGOXIN [Suspect]
  3. ALDACTONE [Suspect]
  4. XOPENEX [Suspect]
     Indication: CHRONIC OBSTRUCTIVE PULMONARY DISEASE
     Dosage: 1.25 MG/3ML, 4X/DAY
     Dates: start: 20040601, end: 20090101
  5. XOPENEX [Suspect]
     Dosage: 1.25MG/ 3ML, 1X/DAY
     Dates: start: 20090301, end: 20090301
  6. IPRATROPIUM BROMIDE [Concomitant]
  7. TRACLEER [Concomitant]
  8. LASIX [Concomitant]
  9. ACETAZOLAMIDE [Concomitant]
  10. POTASSIUM [Concomitant]
  11. COUMADIN [Concomitant]
  12. OXYGEN [Concomitant]
  13. ALBUTEROL [Concomitant]
     Dosage: UNK
     Dates: start: 20090101
  14. ADVAIR [Concomitant]
  15. LEVOTHYROXINE SODIUM [Concomitant]
  16. FLONASE [Concomitant]
  17. NEXIUM [Concomitant]

REACTIONS (1)
  - ATRIAL FLUTTER [None]
